FAERS Safety Report 16149312 (Version 8)
Quarter: 2020Q4

REPORT INFORMATION
  Report Type: Report from Study
  Country: DO (occurrence: DO)
  Receive Date: 20190402
  Receipt Date: 20201106
  Transmission Date: 20210113
  Serious: Yes (Other)
  Sender: FDA-Public Use
  Company Number: PHHY2019DO028730

PATIENT
  Age: 20 Year
  Sex: Female
  Weight: 87 kg

DRUGS (2)
  1. GILENYA [Suspect]
     Active Substance: FINGOLIMOD HYDROCHLORIDE
     Dosage: 0.5 MG, QD
     Route: 048
     Dates: start: 20200820
  2. GILENYA [Suspect]
     Active Substance: FINGOLIMOD HYDROCHLORIDE
     Indication: RELAPSING-REMITTING MULTIPLE SCLEROSIS
     Dosage: 0.5 MG, QD
     Route: 048
     Dates: start: 20180920

REACTIONS (24)
  - Visual impairment [Unknown]
  - Ear pain [Not Recovered/Not Resolved]
  - Helicobacter infection [Unknown]
  - Mood altered [Unknown]
  - Multiple sclerosis relapse [Unknown]
  - Hepatic enzyme increased [Unknown]
  - Vasculitis [Unknown]
  - Anxiety [Unknown]
  - Lymphopenia [Unknown]
  - Malaise [Not Recovered/Not Resolved]
  - Spinal cord injury cervical [Unknown]
  - Constipation [Unknown]
  - Stress [Unknown]
  - Cataract [Unknown]
  - Haematochezia [Unknown]
  - Bipolar disorder [Unknown]
  - Weight increased [Unknown]
  - Fear [Unknown]
  - Neck pain [Unknown]
  - Uveitis [Unknown]
  - Brain injury [Unknown]
  - Anaemia [Unknown]
  - Urinary tract infection [Unknown]
  - Headache [Not Recovered/Not Resolved]

NARRATIVE: CASE EVENT DATE: 20200202
